FAERS Safety Report 9638358 (Version 1)
Quarter: 2013Q4

REPORT INFORMATION
  Report Type: Spontaneous
  Country: CN (occurrence: CN)
  Receive Date: 20131022
  Receipt Date: 20131022
  Transmission Date: 20140711
  Serious: Yes (Other)
  Sender: FDA-Public Use
  Company Number: CN-GLAXOSMITHKLINE-B0929105A

PATIENT
  Age: 66 Year
  Sex: Male
  Weight: 50 kg

DRUGS (1)
  1. SALBUTAMOL SULPHATE [Suspect]
     Indication: CHRONIC OBSTRUCTIVE PULMONARY DISEASE
     Dosage: 2ML THREE TIMES PER DAY
     Route: 055
     Dates: start: 20120326, end: 20120329

REACTIONS (3)
  - Delirium [Recovered/Resolved]
  - Restlessness [Recovered/Resolved]
  - Incoherent [Recovered/Resolved]
